FAERS Safety Report 8924874 (Version 1)
Quarter: 2012Q4

REPORT INFORMATION
  Report Type: 
  Country: US (occurrence: ZA)
  Receive Date: 20121126
  Receipt Date: 20121126
  Transmission Date: 20130627
  Serious: Yes (Hospitalization, Other)
  Sender: FDA-Public Use
  Company Number: ZA-ASTRAZENECA-2012SE80976

PATIENT
  Sex: Male
  Weight: 5.2 kg

DRUGS (4)
  1. SYNAGIS [Suspect]
     Indication: PREMATURE BABY
     Route: 030
     Dates: start: 20120727
  2. SYNAGIS [Suspect]
     Indication: BRONCHOPULMONARY DYSPLASIA
     Route: 030
     Dates: start: 20120727
  3. DEMAZIN [Concomitant]
     Indication: RHINORRHOEA
  4. IRAMINE MALEATE, PSEUDOEPHEDRINE SULFATE [Concomitant]

REACTIONS (4)
  - Convulsion [Unknown]
  - Respiratory syncytial virus infection [Unknown]
  - Respiratory syncytial virus bronchiolitis [Recovered/Resolved]
  - Drug ineffective [Unknown]
